FAERS Safety Report 8392843 (Version 3)
Quarter: 2012Q4

REPORT INFORMATION
  Report Type: 
  Country: US (occurrence: US)
  Receive Date: 20120207
  Receipt Date: 20121008
  Transmission Date: 20130627
  Serious: No
  Sender: FDA-Public Use
  Company Number: US-BIOGENIDEC-2012BI003567

PATIENT
  Age: 57 None
  Sex: Female

DRUGS (2)
  1. TYSABRI [Suspect]
     Indication: MULTIPLE SCLEROSIS
     Route: 042
     Dates: start: 20080528
  2. AVONEX [Concomitant]
     Indication: MULTIPLE SCLEROSIS
     Route: 030
     Dates: start: 20030723

REACTIONS (10)
  - Ear disorder [Not Recovered/Not Resolved]
  - Sensation of foreign body [Unknown]
  - General symptom [Not Recovered/Not Resolved]
  - Inappropriate affect [Recovered/Resolved]
  - Depression [Unknown]
  - Vertigo [Unknown]
  - Dyspnoea exertional [Not Recovered/Not Resolved]
  - Respiratory tract congestion [Not Recovered/Not Resolved]
  - Oropharyngeal pain [Not Recovered/Not Resolved]
  - Headache [Unknown]
